FAERS Safety Report 7491699-4 (Version None)
Quarter: 2011Q2

REPORT INFORMATION
  Report Type: 
  Country: None (occurrence: None)
  Receive Date: 20110519
  Receipt Date: 20110517
  Transmission Date: 20111010
  Serious: No
  Sender: FDA-Public Use
  Company Number: US-TEVA-282149USA

PATIENT
  Sex: Male

DRUGS (1)
  1. PROAIR HFA [Suspect]
     Dosage: 360 MICROGRAM;
     Route: 055
     Dates: start: 20110301

REACTIONS (1)
  - MUSCLE SPASMS [None]
